FAERS Safety Report 11805709 (Version 1)
Quarter: 2015Q4

REPORT INFORMATION
  Report Type: Spontaneous
  Country: US (occurrence: None)
  Receive Date: 20151204
  Receipt Date: 20151204
  Transmission Date: 20160305
  Serious: Yes (Disabling)
  Sender: FDA-Public Use
  Company Number: None

PATIENT
  Age: 50 Year
  Sex: Female
  Weight: 72.58 kg

DRUGS (6)
  1. NUVIGIL [Concomitant]
     Active Substance: ARMODAFINIL
  2. LEVOFLOXACIN. [Suspect]
     Active Substance: LEVOFLOXACIN
     Indication: TONSILLITIS
     Dosage: 7 PILLS
     Route: 048
     Dates: start: 20150108, end: 20150114
  3. NUVIGIL [Concomitant]
     Active Substance: ARMODAFINIL
  4. ESCITALOPRAM [Concomitant]
     Active Substance: ESCITALOPRAM OXALATE
  5. MELOXICAM. [Concomitant]
     Active Substance: MELOXICAM
  6. IBUPROFEN. [Concomitant]
     Active Substance: IBUPROFEN

REACTIONS (3)
  - Pain in extremity [None]
  - Gait disturbance [None]
  - Activities of daily living impaired [None]

NARRATIVE: CASE EVENT DATE: 20150108
